FAERS Safety Report 9746264 (Version 1)
Quarter: 2013Q4

REPORT INFORMATION
  Report Type: Spontaneous
  Country: NL (occurrence: None)
  Receive Date: 20131205
  Receipt Date: 20131205
  Transmission Date: 20140711
  Serious: Yes (Hospitalization, Disabling)
  Sender: FDA-Public Use
  Company Number: 2013/211

PATIENT
  Age: 51 Year
  Sex: Female

DRUGS (3)
  1. IBANDRONATE [Suspect]
     Route: 048
  2. LETROZOLE [Concomitant]
  3. CALCIUM/COLECALCIFEROL [Concomitant]

REACTIONS (5)
  - Headache [None]
  - Vision blurred [None]
  - Gait disturbance [None]
  - Hyperhidrosis [None]
  - Flushing [None]
